FAERS Safety Report 4935133-4 (Version None)
Quarter: 2006Q1

REPORT INFORMATION
  Report Type: 
  Country: None (occurrence: None)
  Receive Date: 20060306
  Receipt Date: 20060306
  Transmission Date: 20060701
  Serious: No
  Sender: FDA-Public Use
  Company Number: None

PATIENT
  Sex: Female
  Weight: 73.0291 kg

DRUGS (3)
  1. GENTAMICIN [Suspect]
     Indication: ABSCESS
     Dosage: 350 MG Q 24 HOURS IV
     Route: 042
     Dates: start: 20050718, end: 20050728
  2. GENTAMICIN [Suspect]
     Indication: CELLULITIS
     Dosage: 350 MG Q 24 HOURS IV
     Route: 042
     Dates: start: 20050718, end: 20050728
  3. GENTAMICIN [Suspect]
     Indication: BACILLUS INFECTION
     Dosage: 250 MG Q 24 HOURS IV
     Route: 042
     Dates: start: 20050809, end: 20050819

REACTIONS (6)
  - DISTURBANCE IN ATTENTION [None]
  - DIZZINESS [None]
  - FALL [None]
  - GAIT DISTURBANCE [None]
  - TINNITUS [None]
  - VESTIBULAR DISORDER [None]
